FAERS Safety Report 7578386-9 (Version None)
Quarter: 2011Q2

REPORT INFORMATION
  Report Type: 
  Country: None (occurrence: None)
  Receive Date: 20110628
  Receipt Date: 20110621
  Transmission Date: 20111010
  Serious: Yes (Other)
  Sender: FDA-Public Use
  Company Number: GXKR2011DE02053

PATIENT
  Age: 89 Year
  Sex: Female

DRUGS (1)
  1. ALENDRONATE SODIUM [Suspect]
     Dosage: UNK
     Route: 048
     Dates: start: 20031101, end: 20051201

REACTIONS (4)
  - FISTULA [None]
  - PURULENT DISCHARGE [None]
  - EXPOSED BONE IN JAW [None]
  - OSTEOMYELITIS [None]
